APPROVED DRUG PRODUCT: MAYZENT
Active Ingredient: SIPONIMOD
Strength: EQ 2MG BASE
Dosage Form/Route: TABLET;ORAL
Application: N209884 | Product #002
Applicant: NOVARTIS PHARMACEUTICALS CORP
Approved: Mar 26, 2019 | RLD: Yes | RS: Yes | Type: RX

PATENTS:
Patent 8492441 | Expires: Nov 30, 2030
Patent 11944602 | Expires: Apr 23, 2036
Patent 7939519 | Expires: Aug 27, 2028
Patent 12071402 | Expires: Jan 5, 2032